FAERS Safety Report 14155863 (Version 3)
Quarter: 2017Q4

REPORT INFORMATION
  Report Type: Spontaneous
  Country: US (occurrence: US)
  Receive Date: 20171103
  Receipt Date: 20171215
  Transmission Date: 20180321
  Serious: Yes (Death, Other)
  Sender: FDA-Public Use
  Company Number: US-009507513-1709USA001828

PATIENT
  Age: 52 Year
  Sex: Male
  Weight: 82.99 kg

DRUGS (2)
  1. BELSOMRA [Suspect]
     Active Substance: SUVOREXANT
     Indication: INSOMNIA
     Dosage: 15 MG TABLET, 1 TABLET AT BEDTIME
     Route: 048
     Dates: start: 20170517
  2. NP THYROID [Concomitant]
     Active Substance: LEVOTHYROXINE\LIOTHYRONINE
     Dosage: UNK
     Dates: start: 201702

REACTIONS (2)
  - Depression [Unknown]
  - Sudden death [Fatal]

NARRATIVE: CASE EVENT DATE: 20170517
